FAERS Safety Report 14916892 (Version 1)
Quarter: 2018Q2

REPORT INFORMATION
  Report Type: Spontaneous
  Country: US (occurrence: US)
  Receive Date: 20180520
  Receipt Date: 20180520
  Transmission Date: 20180711
  Serious: Yes (Other)
  Sender: FDA-Public Use
  Company Number: US-ROCHE-2123050

PATIENT
  Sex: Male

DRUGS (1)
  1. AVASTIN [Suspect]
     Active Substance: BEVACIZUMAB
     Indication: NEOVASCULAR AGE-RELATED MACULAR DEGENERATION
     Route: 065

REACTIONS (6)
  - Off label use [Unknown]
  - Visual acuity reduced [Unknown]
  - Hypertension [Unknown]
  - Diabetes mellitus [Unknown]
  - Cataract [Unknown]
  - Intentional product use issue [Unknown]
